FAERS Safety Report 7480397-9 (Version None)
Quarter: 2011Q2

REPORT INFORMATION
  Report Type: 
  Country: None (occurrence: None)
  Receive Date: 20110516
  Receipt Date: 20110505
  Transmission Date: 20111010
  Serious: No
  Sender: FDA-Public Use
  Company Number: PHHY2011US19950

PATIENT
  Sex: Female

DRUGS (6)
  1. TASIGNA [Suspect]
     Dosage: 400 MG, BID
     Route: 048
     Dates: start: 20110214
  2. LEXAPRO [Concomitant]
     Indication: DEPRESSION
     Dosage: 10 MG, QD
     Route: 048
     Dates: start: 20101101, end: 20110201
  3. TASIGNA [Suspect]
     Indication: CHRONIC MYELOID LEUKAEMIA
     Dosage: 300 MG, BID
     Route: 048
     Dates: start: 20101124
  4. TASIGNA [Suspect]
     Dosage: 300 MG, BID
     Route: 048
     Dates: start: 20110310
  5. NORCO [Concomitant]
     Indication: PAIN
     Dosage: 325 MG, Q6H
     Route: 048
     Dates: start: 20110112
  6. XANAX [Concomitant]
     Dosage: 0.25 MG, Q8H
     Route: 048
     Dates: start: 20110112

REACTIONS (4)
  - EPISTAXIS [None]
  - HEADACHE [None]
  - SINUSITIS [None]
  - PHARYNGITIS STREPTOCOCCAL [None]
